FAERS Safety Report 16472721 (Version 1)
Quarter: 2019Q2

REPORT INFORMATION
  Report Type: Spontaneous
  Country: US (occurrence: US)
  Receive Date: 20190514
  Receipt Date: 20190514
  Transmission Date: 20190711
  Serious: Yes (Hospitalization)
  Sender: FDA-Public Use
  Company Number: None

PATIENT
  Age: 91 Year
  Sex: Male

DRUGS (1)
  1. LEVOFLOXACIN. [Suspect]
     Active Substance: LEVOFLOXACIN
     Indication: UPPER RESPIRATORY TRACT INFECTION
     Route: 048
     Dates: start: 20190304, end: 20190311

REACTIONS (7)
  - Dialysis [None]
  - Adrenal insufficiency [None]
  - Lethargy [None]
  - Dyspnoea [None]
  - Hypoglycaemia [None]
  - Aggression [None]
  - Mental status changes [None]

NARRATIVE: CASE EVENT DATE: 20190311
